FAERS Safety Report 9588646 (Version 1)
Quarter: 2013Q4

REPORT INFORMATION
  Report Type: Spontaneous
  Country: US (occurrence: US)
  Receive Date: 20131003
  Receipt Date: 20131003
  Transmission Date: 20140711
  Serious: No
  Sender: FDA-Public Use
  Company Number: US-AMGEN-USASP2012065146

PATIENT
  Age: 60 Year
  Sex: Female
  Weight: 86.17 kg

DRUGS (6)
  1. ENBREL [Suspect]
     Indication: PSORIATIC ARTHROPATHY
     Dosage: 50 MG, QWK
     Route: 058
  2. VENTOLIN HFA [Concomitant]
     Dosage: UNK
  3. VITAMIN D                          /00107901/ [Concomitant]
     Dosage: 50000 UNIT, UNK
  4. DILTIAZEM [Concomitant]
     Dosage: 180 MG, UNK
  5. TYLENOL                            /00020001/ [Concomitant]
     Dosage: 325 MG, UNK
  6. EVAMIST [Concomitant]
     Dosage: 1.53 MG, UNK

REACTIONS (1)
  - Lower respiratory tract infection fungal [Recovered/Resolved]
